FAERS Safety Report 12476901 (Version 12)
Quarter: 2017Q2

REPORT INFORMATION
  Report Type: Report from Study
  Country: JP (occurrence: JP)
  Receive Date: 20160617
  Receipt Date: 20170512
  Transmission Date: 20170830
  Serious: Yes (Hospitalization, Other)
  Sender: FDA-Public Use
  Company Number: JP-AMGEN-JPNCT2016078616

PATIENT
  Age: 54 Year
  Sex: Male
  Weight: 45.1 kg

DRUGS (12)
  1. OXALIPLATIN. [Suspect]
     Active Substance: OXALIPLATIN
     Dosage: 120 MG, Q2WEEKS
     Route: 041
     Dates: start: 20160627, end: 20160711
  2. 5-FU [Suspect]
     Active Substance: FLUOROURACIL
     Dosage: 550 MG, Q2WK
     Route: 040
     Dates: start: 20160627, end: 20160926
  3. PANITUMUMAB [Suspect]
     Active Substance: PANITUMUMAB
     Dosage: 270 MG, Q2WK
     Route: 041
     Dates: start: 20160627, end: 20160926
  4. 5-FU [Suspect]
     Active Substance: FLUOROURACIL
     Indication: COLON CANCER
     Dosage: 550 MG, Q2WK
     Route: 040
     Dates: start: 20160603, end: 20160603
  5. CALCIUM LEVOFOLINATE [Suspect]
     Active Substance: LEVOLEUCOVORIN CALCIUM
     Indication: COLON CANCER
     Dosage: 275 MG, Q2WEEKS
     Route: 041
     Dates: start: 20160603, end: 20160603
  6. PANITUMUMAB [Suspect]
     Active Substance: PANITUMUMAB
     Dosage: UNK
     Route: 041
     Dates: start: 20161128, end: 20170110
  7. OXALIPLATIN. [Suspect]
     Active Substance: OXALIPLATIN
     Dosage: 65 MG/M2, Q2WEEKS
     Route: 041
     Dates: start: 20160725, end: 20160926
  8. 5-FU [Suspect]
     Active Substance: FLUOROURACIL
     Dosage: 3450 MG, Q2WEEKS
     Route: 041
     Dates: start: 20160603, end: 20160603
  9. 5-FU [Suspect]
     Active Substance: FLUOROURACIL
     Dosage: 3450 MG, Q2WEEKS
     Route: 041
     Dates: start: 20160627, end: 20160926
  10. OXALIPLATIN. [Suspect]
     Active Substance: OXALIPLATIN
     Indication: COLON CANCER
     Dosage: 120 MG, Q2WEEKS
     Route: 041
     Dates: start: 20160603, end: 20160603
  11. PANITUMUMAB [Suspect]
     Active Substance: PANITUMUMAB
     Indication: COLON CANCER
     Dosage: 270 MG, Q2WK
     Route: 041
     Dates: start: 20160603, end: 20160603
  12. CALCIUM LEVOFOLINATE [Suspect]
     Active Substance: LEVOLEUCOVORIN CALCIUM
     Dosage: 275 MG, Q2WEEKS
     Route: 041
     Dates: start: 20160627, end: 20160926

REACTIONS (8)
  - Dermatitis acneiform [Not Recovered/Not Resolved]
  - Paronychia [Not Recovered/Not Resolved]
  - Palmar-plantar erythrodysaesthesia syndrome [Not Recovered/Not Resolved]
  - Malaise [Not Recovered/Not Resolved]
  - Peripheral sensory neuropathy [Not Recovered/Not Resolved]
  - Diarrhoea [Recovered/Resolved]
  - Abdominal abscess [Recovering/Resolving]
  - Hypomagnesaemia [Not Recovered/Not Resolved]

NARRATIVE: CASE EVENT DATE: 20160605
